FAERS Safety Report 10250204 (Version 1)
Quarter: 2014Q2

REPORT INFORMATION
  Report Type: Spontaneous
  Country: US (occurrence: US)
  Receive Date: 20140620
  Receipt Date: 20140620
  Transmission Date: 20141212
  Serious: No
  Sender: FDA-Public Use
  Company Number: US-009507513-1406USA008381

PATIENT
  Sex: Male

DRUGS (1)
  1. JANUMET XR [Suspect]
     Dosage: UNK
     Route: 048
     Dates: start: 20140605

REACTIONS (3)
  - Chest discomfort [Not Recovered/Not Resolved]
  - Pain [Not Recovered/Not Resolved]
  - Eye pain [Not Recovered/Not Resolved]
